FAERS Safety Report 4521633-8 (Version None)
Quarter: 2004Q4

REPORT INFORMATION
  Report Type: 
  Country: None (occurrence: None)
  Receive Date: 20041206
  Receipt Date: 20041124
  Transmission Date: 20050328
  Serious: Yes (Other)
  Sender: FDA-Public Use
  Company Number: S04-USA-05541-01

PATIENT
  Age: 21 Year
  Sex: Female
  Weight: 45.3597 kg

DRUGS (2)
  1. TESSALON [Suspect]
     Indication: COUGH
     Dosage: 1000 MG ONCE PO
     Route: 048
     Dates: start: 20040805, end: 20040805
  2. TESSALON [Suspect]
     Indication: COUGH
     Dosage: 1000 MG TID PO
     Route: 048
     Dates: start: 20040806, end: 20040806

REACTIONS (8)
  - ACCIDENTAL OVERDOSE [None]
  - ATRIAL TACHYCARDIA [None]
  - CHEST PAIN [None]
  - CLONIC CONVULSION [None]
  - COUGH [None]
  - MEDICATION ERROR [None]
  - PALPITATIONS [None]
  - TACHYCARDIA [None]
